FAERS Safety Report 9936208 (Version 1)
Quarter: 2014Q1

REPORT INFORMATION
  Report Type: Spontaneous
  Country: US (occurrence: US)
  Receive Date: 20140228
  Receipt Date: 20140228
  Transmission Date: 20141002
  Serious: No
  Sender: FDA-Public Use
  Company Number: US-AMGEN-USASP2013091065

PATIENT
  Age: 54 Year
  Sex: Female
  Weight: 90.7 kg

DRUGS (7)
  1. ENBREL [Suspect]
     Indication: PSORIATIC ARTHROPATHY
     Dosage: 50 MG, QWK
     Route: 058
     Dates: start: 201101, end: 201311
  2. METHOTREXATE [Suspect]
     Indication: PRODUCT USED FOR UNKNOWN INDICATION
     Dosage: UNK
     Route: 065
  3. CYANOCOBALAMIN [Concomitant]
     Dosage: 1000 MUG, UNK
  4. TOPROL [Concomitant]
     Dosage: 50 MG, UNK
  5. DIOVAN HCT [Concomitant]
     Dosage: 160-25 MG
  6. KLOR-CON [Concomitant]
     Dosage: 10 MEQ ER
  7. VICTOZA [Concomitant]
     Dosage: 18MG/3ML

REACTIONS (8)
  - Fatigue [Recovered/Resolved]
  - Malaise [Recovered/Resolved]
  - Arthritis [Unknown]
  - Laceration [Recovered/Resolved]
  - Therapeutic response decreased [Unknown]
  - Urinary tract infection [Recovered/Resolved]
  - Fungal infection [Recovered/Resolved]
  - Injection site pain [Recovered/Resolved]
